FAERS Safety Report 4808425-7 (Version None)
Quarter: 2005Q4

REPORT INFORMATION
  Report Type: 
  Country: None (occurrence: None)
  Receive Date: 20051021
  Receipt Date: 20031021
  Transmission Date: 20060501
  Serious: No
  Sender: FDA-Public Use
  Company Number: FR_031003055

PATIENT
  Age: 45 Year
  Sex: Female

DRUGS (1)
  1. ZYPREXA [Suspect]
     Indication: PSYCHOTIC DISORDER
     Dosage: 7.5 MG/DAY
     Dates: start: 20020517, end: 20031016

REACTIONS (1)
  - PLATELET COUNT INCREASED [None]
